FAERS Safety Report 15604737 (Version 1)
Quarter: 2018Q4

REPORT INFORMATION
  Report Type: Spontaneous
  Country: JP (occurrence: JP)
  Receive Date: 20181111
  Receipt Date: 20181111
  Transmission Date: 20190205
  Serious: Yes (Other)
  Sender: FDA-Public Use
  Company Number: PHHY2018JP147816

PATIENT
  Age: 29 Year
  Sex: Female
  Weight: 54 kg

DRUGS (2)
  1. METHYLPREDNISOLONE. [Suspect]
     Active Substance: METHYLPREDNISOLONE
     Indication: PROTEINURIA
  2. METHYLPREDNISOLONE. [Suspect]
     Active Substance: METHYLPREDNISOLONE
     Indication: BLOOD CREATININE INCREASED
     Dosage: 500 MG, QD
     Route: 065

REACTIONS (4)
  - Proteinuria [Unknown]
  - Blood creatinine increased [Not Recovered/Not Resolved]
  - Product use in unapproved indication [Unknown]
  - Glomerulosclerosis [Unknown]
